FAERS Safety Report 5500195-2 (Version None)
Quarter: 2007Q4

REPORT INFORMATION
  Report Type: 
  Country: None (occurrence: None)
  Receive Date: 20071025
  Receipt Date: 20071012
  Transmission Date: 20080405
  Serious: Yes (Life-Threatening)
  Sender: FDA-Public Use
  Company Number: GXKR2007PL08409

PATIENT
  Age: 24 Year
  Sex: Female

DRUGS (3)
  1. PROPRANOLOL [Suspect]
     Indication: SUICIDE ATTEMPT
  2. ISOPTIN [Suspect]
     Indication: SUICIDE ATTEMPT
  3. ENALAPRIL MALEATE [Suspect]
     Indication: SUICIDE ATTEMPT

REACTIONS (21)
  - BRADYCARDIA [None]
  - CARDIAC ARREST [None]
  - CARDIOVASCULAR INSUFFICIENCY [None]
  - COUGH [None]
  - CYANOSIS [None]
  - ELECTROCARDIOGRAM ABNORMAL [None]
  - GASTRIC LAVAGE [None]
  - GENERAL PHYSICAL HEALTH DETERIORATION [None]
  - HYPOTENSION [None]
  - INCREASED BRONCHIAL SECRETION [None]
  - INTENTIONAL OVERDOSE [None]
  - INTUBATION [None]
  - POISONING [None]
  - PULMONARY OEDEMA [None]
  - RALES [None]
  - RESPIRATORY FAILURE [None]
  - RESUSCITATION [None]
  - SHOCK [None]
  - SUICIDE ATTEMPT [None]
  - VENTRICULAR EXTRASYSTOLES [None]
  - VENTRICULAR FIBRILLATION [None]
